FAERS Safety Report 10853199 (Version 1)
Quarter: 2015Q1

REPORT INFORMATION
  Report Type: Spontaneous
  Country: US (occurrence: US)
  Receive Date: 20150223
  Receipt Date: 20150223
  Transmission Date: 20150721
  Serious: No
  Sender: FDA-Public Use
  Company Number: US-B.I. PHARMACEUTICALS,INC./RIDGEFIELD-2015-BI-07264BP

PATIENT
  Age: 82 Year
  Sex: Female

DRUGS (2)
  1. ZANTAC [Suspect]
     Active Substance: RANITIDINE HYDROCHLORIDE
     Indication: IMPAIRED GASTRIC EMPTYING
     Dosage: 300 MG
     Route: 048
     Dates: start: 201501
  2. ZANTAC [Suspect]
     Active Substance: RANITIDINE HYDROCHLORIDE
     Dosage: 300 MG
     Route: 048
     Dates: start: 20150210, end: 20150210

REACTIONS (4)
  - Accidental overdose [Recovered/Resolved]
  - Incorrect drug administration duration [Not Recovered/Not Resolved]
  - Off label use [Unknown]
  - Intraocular pressure increased [Not Recovered/Not Resolved]

NARRATIVE: CASE EVENT DATE: 201501
